FAERS Safety Report 7086229-5 (Version None)
Quarter: 2010Q4

REPORT INFORMATION
  Report Type: 
  Country: None (occurrence: None)
  Receive Date: 20101028
  Receipt Date: 20101020
  Transmission Date: 20110411
  Serious: Yes (Death, Other)
  Sender: FDA-Public Use
  Company Number: GER/UKI/10/0015845

PATIENT
  Age: 70 Year
  Sex: Female
  Weight: 26.4 kg

DRUGS (11)
  1. FLUCONAZOLE [Suspect]
     Indication: SYSTEMIC CANDIDA
     Dosage: ORAL
     Route: 048
     Dates: start: 20100111, end: 20100131
  2. WARFARIN (WARFARIN) [Suspect]
     Indication: PRODUCT USED FOR UNKNOWN INDICATION
     Dosage: ORAL
     Route: 048
     Dates: end: 20100131
  3. ATORVASTATIN (ATORVASTATIN) [Concomitant]
  4. CALPOL (PARACETAMOL) [Concomitant]
  5. CODEINE PHOSPHATE (CODEINE PHOSPHATE) [Concomitant]
  6. COD LIVER OIL FORTIFIED TAB [Concomitant]
  7. ASCORBIC ACID [Concomitant]
  8. VITAMIN D [Concomitant]
  9. VITAMIN E [Concomitant]
  10. CO-AMOXICLAV (AUGMENTIN /00756801/) [Concomitant]
  11. FUROSEMIDE [Concomitant]

REACTIONS (22)
  - ABSCESS [None]
  - ACCIDENTAL DEATH [None]
  - ARTERIOSCLEROSIS [None]
  - CEREBRAL HAEMORRHAGE [None]
  - CONTUSION [None]
  - CORONARY ARTERY STENOSIS [None]
  - DRUG INTERACTION [None]
  - DYSPHAGIA [None]
  - EXCORIATION [None]
  - HAEMARTHROSIS [None]
  - HEADACHE [None]
  - HEPATIC FIBROSIS [None]
  - INTERNATIONAL NORMALISED RATIO INCREASED [None]
  - NEPHROLITHIASIS [None]
  - POST THROMBOTIC SYNDROME [None]
  - PULMONARY HYPERTENSION [None]
  - RENAL ARTERY STENOSIS [None]
  - RENAL ATROPHY [None]
  - SUBARACHNOID HAEMORRHAGE [None]
  - TOXICOLOGIC TEST ABNORMAL [None]
  - VIITH NERVE PARALYSIS [None]
  - VOMITING [None]
